FAERS Safety Report 25234812 (Version 1)
Quarter: 2025Q2

REPORT INFORMATION
  Report Type: Spontaneous
  Country: US (occurrence: US)
  Receive Date: 20250424
  Receipt Date: 20250424
  Transmission Date: 20250717
  Serious: Yes (Hospitalization)
  Sender: MYLAN
  Company Number: US-MYLANLABS-2025M1034947

PATIENT
  Age: 64 Year
  Sex: Male

DRUGS (4)
  1. OXALIPLATIN [Suspect]
     Active Substance: OXALIPLATIN
     Indication: Colorectal adenocarcinoma
  2. FLUOROURACIL [Concomitant]
     Active Substance: FLUOROURACIL
     Indication: Colorectal adenocarcinoma
  3. LEUCOVORIN [Concomitant]
     Active Substance: LEUCOVORIN\LEUCOVORIN CALCIUM
     Indication: Colorectal adenocarcinoma
  4. EPINEPHRINE [Concomitant]
     Active Substance: EPINEPHRINE
     Indication: Haemorrhage

REACTIONS (5)
  - Porto-sinusoidal vascular disorder [Recovered/Resolved]
  - Rectal haemorrhage [Recovered/Resolved]
  - Mesenteric vein thrombosis [Recovered/Resolved]
  - Haematochezia [Recovered/Resolved]
  - Non-cirrhotic portal hypertension [Recovered/Resolved]
